FAERS Safety Report 8611551-8 (Version None)
Quarter: 2012Q3

REPORT INFORMATION
  Report Type: 
  Country: None (occurrence: None)
  Receive Date: 20120822
  Receipt Date: 20120813
  Transmission Date: 20120928
  Serious: Yes (Hospitalization)
  Sender: FDA-Public Use
  Company Number: PHHY2011TR113411

PATIENT
  Sex: Female
  Weight: 49 kg

DRUGS (8)
  1. TASIGNA [Suspect]
     Dosage: 400 MG, DAILY
     Route: 048
  2. TASIGNA [Suspect]
     Dosage: 200 MG PER DAY
     Route: 048
     Dates: end: 20120626
  3. TASIGNA [Suspect]
     Dosage: 200 MG, PER DAY
     Route: 048
     Dates: start: 20120126, end: 20120515
  4. TASIGNA [Suspect]
     Indication: CHRONIC MYELOID LEUKAEMIA
     Dosage: 200 MG, BID
     Route: 048
     Dates: start: 20110615
  5. TASIGNA [Suspect]
     Dosage: 800 MG, DAILY
     Route: 048
  6. TASIGNA [Suspect]
     Dosage: 800 MG, DAILY
     Route: 048
  7. TASIGNA [Suspect]
     Dosage: 400 MG, DAILY
     Route: 048
  8. TASIGNA [Suspect]
     Dosage: 800 MG, DAILY
     Route: 048
     Dates: start: 20111115, end: 20111230

REACTIONS (5)
  - ECCHYMOSIS [None]
  - PAIN [None]
  - DRUG INTOLERANCE [None]
  - PANCYTOPENIA [None]
  - MALAISE [None]
